FAERS Safety Report 5319905-2 (Version None)
Quarter: 2007Q2

REPORT INFORMATION
  Report Type: 
  Country: None (occurrence: None)
  Receive Date: 20070503
  Receipt Date: 20070418
  Transmission Date: 20071010
  Serious: Yes (Other)
  Sender: FDA-Public Use
  Company Number: 8023259

PATIENT
  Age: 12 Month
  Sex: Male

DRUGS (3)
  1. KEPPRA [Suspect]
     Indication: CONVULSION
  2. IMMUNOSUPRESSANTS [Suspect]
     Indication: BONE MARROW TRANSPLANT
  3. FOSPHENYTOIN [Concomitant]

REACTIONS (1)
  - NEUTROPENIA [None]
